FAERS Safety Report 19216184 (Version 1)
Quarter: 2021Q2

REPORT INFORMATION
  Report Type: Spontaneous
  Country: TR (occurrence: TR)
  Receive Date: 20210505
  Receipt Date: 20210505
  Transmission Date: 20210717
  Serious: Yes (Hospitalization, Other)
  Sender: FDA-Public Use
  Company Number: TR-VISTAPHARM, INC.-VER202104-001192

PATIENT
  Age: 6 Year

DRUGS (6)
  1. CLOBAZAM. [Suspect]
     Active Substance: CLOBAZAM
     Dosage: 0.5 MG/KG
  2. MEROPENEM. [Suspect]
     Active Substance: MEROPENEM
     Indication: PNEUMONIA
     Dosage: UNKNOWN
  3. VIGABATRIN. [Concomitant]
     Active Substance: VIGABATRIN
     Indication: EPILEPTIC ENCEPHALOPATHY
     Dosage: 38 MG/KG
  4. CLOBAZAM. [Suspect]
     Active Substance: CLOBAZAM
     Indication: EPILEPTIC ENCEPHALOPATHY
     Dosage: 0.75 MG/KG
  5. SULTHIAME [Concomitant]
     Active Substance: SULTHIAME
     Indication: EPILEPTIC ENCEPHALOPATHY
     Dosage: 15 MG/KG
  6. BACLOFEN. [Concomitant]
     Active Substance: BACLOFEN
     Indication: EPILEPTIC ENCEPHALOPATHY
     Dosage: 1.2 MG/KG

REACTIONS (6)
  - Respiratory arrest [Recovered/Resolved]
  - Respiratory depression [Recovered/Resolved]
  - Somnolence [Recovered/Resolved]
  - Miosis [Recovered/Resolved]
  - Drug interaction [Recovered/Resolved]
  - Hypercapnia [Recovered/Resolved]
